FAERS Safety Report 7554014-3 (Version None)
Quarter: 2011Q2

REPORT INFORMATION
  Report Type: 
  Country: None (occurrence: None)
  Receive Date: 20110617
  Receipt Date: 20110613
  Transmission Date: 20111010
  Serious: Yes (Other)
  Sender: FDA-Public Use
  Company Number: US-CTI_01368_2011

PATIENT
  Age: 47 Year
  Sex: Male

DRUGS (4)
  1. CRESTOR [Concomitant]
     Dosage: DF
  2. JANUVIA [Concomitant]
     Dosage: DF
  3. FACTIVE [Suspect]
     Indication: BRONCHITIS
     Route: 048
     Dates: start: 20110215, end: 20110216
  4. METFORMIN HCL [Concomitant]
     Dosage: DF

REACTIONS (5)
  - ARTHRALGIA [None]
  - NAUSEA [None]
  - HALLUCINATION [None]
  - EUPHORIC MOOD [None]
  - MALAISE [None]
